FAERS Safety Report 7738360-6 (Version None)
Quarter: 2011Q3

REPORT INFORMATION
  Report Type: 
  Country: None (occurrence: None)
  Receive Date: 20110908
  Receipt Date: 20110905
  Transmission Date: 20111222
  Serious: Yes (Hospitalization)
  Sender: FDA-Public Use
  Company Number: CN-PFIZER INC-2011207213

PATIENT
  Age: 74 Year
  Sex: Male

DRUGS (5)
  1. ISOSORBIDE MONONITRATE [Concomitant]
     Dosage: 20MG, TWICE DAILY
     Route: 048
     Dates: start: 20081008
  2. ACETYLSALICYLIC ACID [Concomitant]
     Dosage: 0.1 G, 1X/DAY
     Route: 048
     Dates: start: 20081008
  3. LIPITOR [Suspect]
     Indication: CORONARY ARTERY BYPASS
     Dosage: 20 MG, ONCE EVERY NIGHT
     Route: 048
     Dates: start: 20081008, end: 20090101
  4. METOPROLOL [Concomitant]
     Dosage: 25 MG, 2X/DAY
     Route: 048
     Dates: start: 20081008
  5. FOSINOPRIL SODIUM [Concomitant]
     Dosage: 10 MG, 1X/DAY
     Route: 048
     Dates: start: 20081008

REACTIONS (1)
  - JAUNDICE CHOLESTATIC [None]
